FAERS Safety Report 18089206 (Version 1)
Quarter: 2020Q3

REPORT INFORMATION
  Report Type: Spontaneous
  Country: US (occurrence: US)
  Receive Date: 20200729
  Receipt Date: 20200729
  Transmission Date: 20201103
  Serious: Yes (Other)
  Sender: FDA-Public Use
  Company Number: US-MALLINCKRODT-T202003722

PATIENT
  Age: 65 Year
  Sex: Female

DRUGS (1)
  1. H.P. ACTHAR [Suspect]
     Active Substance: CORTICOTROPIN
     Indication: POLYMYOSITIS
     Dosage: (80 UNITS) 1 MILLILITER, TWICE A WEEK
     Route: 058
     Dates: start: 201901

REACTIONS (2)
  - Gastric disorder [Unknown]
  - Gastric operation [Unknown]

NARRATIVE: CASE EVENT DATE: 202007
